FAERS Safety Report 14310927 (Version 1)
Quarter: 2017Q4

REPORT INFORMATION
  Report Type: Spontaneous
  Country: US (occurrence: US)
  Receive Date: 20171221
  Receipt Date: 20171221
  Transmission Date: 20180321
  Serious: No
  Sender: FDA-Public Use
  Company Number: US-AUROBINDO-AUR-APU-2017-35832

PATIENT
  Age: 79 Year
  Sex: Male
  Weight: 102.6 kg

DRUGS (28)
  1. WARFARIN [Concomitant]
     Active Substance: WARFARIN
     Indication: PROPHYLAXIS
     Dosage: 4 MG, 5 TIMES A WEEK
     Route: 048
  2. LOVAZA [Concomitant]
     Active Substance: OMEGA-3-ACID ETHYL ESTERS
     Indication: CARDIAC DISORDER
     Dosage: 1 G, FOUR TIMES/DAY
     Route: 048
  3. MIRALAX [Concomitant]
     Active Substance: POLYETHYLENE GLYCOL 3350
     Indication: CONSTIPATION
     Dosage: 1 CAPSFUL DAILY
     Route: 048
  4. AMOXICILLIN. [Suspect]
     Active Substance: AMOXICILLIN
     Indication: SINUSITIS
     Dosage: 500 MG, EVERY 8 HOURS
     Route: 048
     Dates: start: 20170517, end: 20170526
  5. TRAMADOL. [Concomitant]
     Active Substance: TRAMADOL
     Indication: PAIN
     Dosage: 50 MG, EVERY 4-6 AS NEEDED
     Route: 048
  6. COENZYME Q10 [Concomitant]
     Active Substance: UBIDECARENONE
     Indication: SUPPLEMENTATION THERAPY
     Dosage: 100 MG, ONCE A DAY
     Route: 048
  7. CALCIUM WITH VITAMIN D             /00944201/ [Concomitant]
     Active Substance: CALCIUM CARBONATE\CHOLECALCIFEROL
     Indication: SUPPLEMENTATION THERAPY
     Dosage: 600 MG, ONCE A DAY
     Route: 048
  8. WARFARIN [Concomitant]
     Active Substance: WARFARIN
     Dosage: 6 MG, 3 TIMES A WEEK
     Route: 048
  9. POTASSIUM CHLORIDE. [Concomitant]
     Active Substance: POTASSIUM CHLORIDE
     Indication: HYPOKALAEMIA
     Dosage: 10 MEQ, 4 TIMES A DAY
     Route: 048
  10. AMILORIDE [Concomitant]
     Active Substance: AMILORIDE
     Indication: HYPOKALAEMIA
     Dosage: 5 MG, TWO TIMES A DAY
     Route: 048
  11. FLUTICASONE. [Concomitant]
     Active Substance: FLUTICASONE
     Indication: RHINITIS
     Dosage: 2 SPRAYS AS NEEDED
  12. TIKOSYN [Suspect]
     Active Substance: DOFETILIDE
     Indication: ATRIAL FIBRILLATION
     Dosage: 0.25 MG, TWO TIMES A DAY
     Route: 048
  13. GABAPENTIN. [Concomitant]
     Active Substance: GABAPENTIN
     Indication: NEURALGIA
     Dosage: 300 MG, ONCE A DAY AT BED TIME
     Route: 065
  14. FAMOTIDINE. [Concomitant]
     Active Substance: FAMOTIDINE
     Indication: ANTACID THERAPY
     Dosage: 40 MG, ONCE A DAY
     Route: 048
  15. FUROSEMIDE. [Concomitant]
     Active Substance: FUROSEMIDE
     Indication: DIURETIC THERAPY
     Dosage: 20 MG, ONCE A DAY
     Route: 048
  16. MAGNESIUM [Concomitant]
     Active Substance: MAGNESIUM
     Indication: SUPPLEMENTATION THERAPY
     Dosage: 250 MG, ONCE A DAY
     Route: 048
  17. MELATONIN [Concomitant]
     Active Substance: MELATONIN
     Indication: SLEEP DISORDER
     Dosage: 10 MG, AT BED TIME
     Route: 048
  18. ASPIRIN                            /00002701/ [Concomitant]
     Active Substance: ASPIRIN
     Indication: CARDIAC DISORDER
     Dosage: 81 MG, ONE TABLET EVERY OTHER DAY
     Route: 048
  19. LISINOPRIL. [Concomitant]
     Active Substance: LISINOPRIL
     Indication: CARDIAC DISORDER
     Dosage: 40 MG, ONCE A DAY
     Route: 048
  20. MYRBETRIQ [Concomitant]
     Active Substance: MIRABEGRON
     Indication: BLADDER DISORDER
     Dosage: 25 MG, ONCE A DAY
     Route: 048
  21. VITAMIN D                          /00107901/ [Concomitant]
     Active Substance: ERGOCALCIFEROL
     Indication: SUPPLEMENTATION THERAPY
     Dosage: 1000 IU, UNK
     Route: 048
  22. MULTIVITAMIN                       /00097801/ [Concomitant]
     Active Substance: VITAMINS
     Indication: SUPPLEMENTATION THERAPY
     Dosage: 1 DF, ONCE A DAY
     Route: 048
  23. METHOTREXATE. [Concomitant]
     Active Substance: METHOTREXATE
     Indication: PSORIATIC ARTHROPATHY
     Dosage: 2.5 MG, 4 TABLETS ONCE A WEEK
     Route: 048
  24. PRAMIPEXOLE. [Concomitant]
     Active Substance: PRAMIPEXOLE
     Indication: RESTLESS LEGS SYNDROME
     Dosage: 0.5 MG, ONCE A BEDTIME
     Route: 048
  25. METANX [Concomitant]
     Active Substance: LEVOMEFOLATE CALCIUM\METHYLCOBALAMIN\PYRIDOXAL PHOSPHATE ANHYDROUS
     Indication: SUPPLEMENTATION THERAPY
     Dosage: 1 DF, DAILY
     Route: 048
  26. AMLODIPINE [Concomitant]
     Active Substance: AMLODIPINE BESYLATE
     Indication: CARDIAC DISORDER
     Dosage: 2.5 MG, ONCE A DAY
     Route: 048
  27. METFORMIN [Concomitant]
     Active Substance: METFORMIN HYDROCHLORIDE
     Indication: DIABETES MELLITUS
     Dosage: 750 MG, TWO TIMES A DAY
     Route: 048
  28. ACETAMINOPHEN. [Concomitant]
     Active Substance: ACETAMINOPHEN
     Indication: PAIN
     Dosage: TAKES IT IN BETWEEN THE TRAMADOL AS NEEDED
     Route: 065

REACTIONS (3)
  - Condition aggravated [Not Recovered/Not Resolved]
  - Ear pain [Not Recovered/Not Resolved]
  - Drug ineffective [Not Recovered/Not Resolved]

NARRATIVE: CASE EVENT DATE: 20170517
